APPROVED DRUG PRODUCT: VASERETIC
Active Ingredient: ENALAPRIL MALEATE; HYDROCHLOROTHIAZIDE
Strength: 5MG;12.5MG
Dosage Form/Route: TABLET;ORAL
Application: N019221 | Product #003 | TE Code: AB
Applicant: BAUSCH HEALTH US LLC
Approved: Jul 12, 1995 | RLD: Yes | RS: No | Type: RX